FAERS Safety Report 7194841-8 (Version None)
Quarter: 2010Q4

REPORT INFORMATION
  Report Type: 
  Country: None (occurrence: None)
  Receive Date: 20101223
  Receipt Date: 20100920
  Transmission Date: 20110411
  Serious: No
  Sender: FDA-Public Use
  Company Number: US-AMGEN-KDL439906

PATIENT

DRUGS (2)
  1. ENBREL [Suspect]
     Indication: RHEUMATOID ARTHRITIS
     Dosage: 50 MG, 2 TIMES/WK
     Route: 058
     Dates: start: 20080101
  2. METHOTREXATE [Concomitant]
     Dosage: 2.5 MG, 4 TIMES/WK
     Route: 048

REACTIONS (4)
  - EPISCLERITIS [None]
  - HYPERAESTHESIA [None]
  - RASH MACULAR [None]
  - RHEUMATOID ARTHRITIS [None]
